FAERS Safety Report 15297206 (Version 1)
Quarter: 2018Q3

REPORT INFORMATION
  Report Type: Spontaneous
  Country: JP (occurrence: JP)
  Receive Date: 20180820
  Receipt Date: 20180820
  Transmission Date: 20181010
  Serious: Yes (Hospitalization, Other)
  Sender: FDA-Public Use
  Company Number: JP-ALLERGAN-1840246US

PATIENT
  Age: 92 Year
  Sex: Male
  Weight: 52.9 kg

DRUGS (20)
  1. KAYTWO N [Suspect]
     Active Substance: MENATETRENONE
     Indication: PROTHROMBIN TIME PROLONGED
     Dosage: 10?20 MG, QD
     Route: 042
     Dates: start: 20180303
  2. KAYTWO N [Suspect]
     Active Substance: MENATETRENONE
     Dosage: 10?20 MG, QD
     Route: 042
     Dates: start: 20180314
  3. KAYTWO N [Suspect]
     Active Substance: MENATETRENONE
     Dosage: 10?20 MG, QD
     Route: 042
     Dates: start: 20180326
  4. KAYTWO N [Suspect]
     Active Substance: MENATETRENONE
     Dosage: 10?20 MG, QD
     Route: 042
     Dates: start: 20180323
  5. LASIX [Concomitant]
     Active Substance: FUROSEMIDE
     Indication: PRODUCT USED FOR UNKNOWN INDICATION
     Dosage: 40 MG, QD
     Route: 048
  6. SILODOSIN ? BP [Suspect]
     Active Substance: SILODOSIN
     Indication: BENIGN PROSTATIC HYPERPLASIA
     Dosage: 4 MG, BID
     Route: 048
     Dates: start: 20180304
  7. ARTIST [Suspect]
     Active Substance: CARVEDILOL
     Indication: HYPERTENSION
     Dosage: 5 MG, QD
     Route: 048
     Dates: end: 20180316
  8. DIART [Suspect]
     Active Substance: AZOSEMIDE
     Indication: CARDIAC FAILURE
     Dosage: 15?45 MG
     Route: 048
     Dates: start: 20180313
  9. FAMOTIDINE. [Concomitant]
     Active Substance: FAMOTIDINE
     Indication: GASTRIC ULCER
     Dosage: 20 MG, BID
     Route: 048
  10. ALDACTONE [Suspect]
     Active Substance: SPIRONOLACTONE
     Indication: CARDIAC FAILURE CHRONIC
     Dosage: 25 MG, UNK
     Route: 065
     Dates: start: 20180216, end: 20180302
  11. SUVOREXANT. [Suspect]
     Active Substance: SUVOREXANT
     Indication: INSOMNIA
     Dosage: 15 MG, QD
     Route: 048
     Dates: start: 20180303, end: 20180303
  12. EQUA [Suspect]
     Active Substance: VILDAGLIPTIN
     Indication: TYPE 2 DIABETES MELLITUS
     Dosage: 50 MG, BID
     Route: 048
     Dates: start: 20180202, end: 20180607
  13. PROTHROMBIN COMPLEX CONCENTRATE NOS [Suspect]
     Active Substance: COAGULATION FACTOR IX HUMAN\COAGULATION FACTOR VII HUMAN\COAGULATION FACTOR X HUMAN\PROTHROMBIN
     Indication: PROTHROMBIN TIME PROLONGED
     Dosage: 1000 UNITS, QD
     Route: 042
     Dates: start: 20180205
  14. ROZEREM [Concomitant]
     Active Substance: RAMELTEON
     Indication: INSOMNIA
     Dosage: 8 MG, QD
     Route: 048
     Dates: start: 20180519
  15. CEFZON [Concomitant]
     Active Substance: CEFDINIR
     Indication: PRODUCT USED FOR UNKNOWN INDICATION
     Dosage: 100 MG, TID
     Route: 065
     Dates: start: 20180418, end: 20180422
  16. TAMIFLU [Suspect]
     Active Substance: OSELTAMIVIR PHOSPHATE
     Indication: ANTIVIRAL PROPHYLAXIS
     Dosage: 75 MG, QD
     Route: 065
     Dates: start: 20180323, end: 20180401
  17. CELECOX [Suspect]
     Active Substance: CELECOXIB
     Indication: BACK PAIN
     Dosage: 100 MG, BID
     Route: 065
     Dates: start: 20180312, end: 20180608
  18. FUROSEMIDE W/POTASSIUM CHLORIDE [Suspect]
     Active Substance: FUROSEMIDE\POTASSIUM CHLORIDE
     Indication: CARDIAC FAILURE CHRONIC
     Dosage: 10?20 MG, QD
     Route: 048
  19. KALIMATE [Suspect]
     Active Substance: CALCIUM POLYSTYRENE SULFONATE
     Indication: CHRONIC KIDNEY DISEASE
     Dosage: 5?10 MG, TID
     Route: 048
     Dates: start: 20180331
  20. WARFARIN [Suspect]
     Active Substance: WARFARIN
     Indication: ATRIAL FIBRILLATION
     Dosage: 2?4 MG, QD
     Route: 048

REACTIONS (6)
  - Gait disturbance [Unknown]
  - Blister rupture [Unknown]
  - Pemphigoid [Recovering/Resolving]
  - Rash [Unknown]
  - Skin exfoliation [Unknown]
  - Blister [Unknown]

NARRATIVE: CASE EVENT DATE: 20180302
